FAERS Safety Report 13303053 (Version 3)
Quarter: 2017Q2

REPORT INFORMATION
  Report Type: Spontaneous
  Country: IT (occurrence: IT)
  Receive Date: 20170307
  Receipt Date: 20170609
  Transmission Date: 20170830
  Serious: Yes (Hospitalization, Other)
  Sender: FDA-Public Use
  Company Number: IT-ABBVIE-17P-083-1898371-00

PATIENT
  Age: 64 Year
  Sex: Male
  Weight: 70 kg

DRUGS (2)
  1. MACLADIN [Suspect]
     Active Substance: CLARITHROMYCIN
     Indication: TRACHEITIS
     Dosage: 3 DF, QD
     Route: 048
     Dates: start: 20170213, end: 20170216
  2. TACHIPIRINA [Suspect]
     Active Substance: ACETAMINOPHEN
     Indication: TRACHEITIS
     Dosage: 6 UNITS DAILY
     Route: 048
     Dates: start: 20170213, end: 20170216

REACTIONS (1)
  - Dermatitis bullous [Recovering/Resolving]

NARRATIVE: CASE EVENT DATE: 20170217
